FAERS Safety Report 18380281 (Version 1)
Quarter: 2020Q4

REPORT INFORMATION
  Report Type: Spontaneous
  Country: US (occurrence: US)
  Receive Date: 20201014
  Receipt Date: 20201014
  Transmission Date: 20210114
  Serious: Yes (Other)
  Sender: FDA-Public Use
  Company Number: US-GW PHARMA-202010USGW03457

PATIENT

DRUGS (1)
  1. EPIDIOLEX [Suspect]
     Active Substance: CANNABIDIOL
     Indication: SEIZURE
     Dosage: 30.71 MG/KG/DAY, 250 MILLIGRAM, BID
     Dates: start: 2019

REACTIONS (2)
  - Seizure [Unknown]
  - Overdose [Unknown]

NARRATIVE: CASE EVENT DATE: 20201007
